FAERS Safety Report 22645487 (Version 2)
Quarter: 2023Q2

REPORT INFORMATION
  Report Type: Spontaneous
  Country: CN (occurrence: CN)
  Receive Date: 20230627
  Receipt Date: 20230630
  Transmission Date: 20230722
  Serious: Yes (Other)
  Sender: FDA-Public Use
  Company Number: CN-SUN PHARMACEUTICAL INDUSTRIES LTD-2023R1-396116

PATIENT
  Age: 49 Year
  Sex: Male

DRUGS (5)
  1. CLOPIDOGREL [Interacting]
     Active Substance: CLOPIDOGREL BISULFATE
     Indication: Cerebral infarction
     Dosage: 75 MILLIGRAM, DAILY
     Route: 048
  2. REPAGLINIDE [Interacting]
     Active Substance: REPAGLINIDE
     Indication: Diabetic nephropathy
     Dosage: 1 MILLIGRAM, DAILY(MORNING)
     Route: 048
  3. REPAGLINIDE [Interacting]
     Active Substance: REPAGLINIDE
     Dosage: 1 MILLIGRAM, DAILY(AFTERNOON)
     Route: 048
  4. REPAGLINIDE [Interacting]
     Active Substance: REPAGLINIDE
     Dosage: 1 MILLIGRAM, DAILY(EVENING)
     Route: 048
  5. FELODIPINE [Concomitant]
     Active Substance: FELODIPINE
     Indication: Hypertension
     Dosage: 10 MILLIGRAM, TID
     Route: 065

REACTIONS (2)
  - Hypoglycaemia [Unknown]
  - Drug interaction [Unknown]
